FAERS Safety Report 19167388 (Version 2)
Quarter: 2021Q2

REPORT INFORMATION
  Report Type: Spontaneous
  Country: US (occurrence: US)
  Receive Date: 20210422
  Receipt Date: 20210611
  Transmission Date: 20210717
  Serious: Yes (Other)
  Sender: FDA-Public Use
  Company Number: US-SA-2021SA130299

PATIENT
  Age: 40 Year
  Sex: Male

DRUGS (4)
  1. ALPROLIX [Suspect]
     Active Substance: EFTRENONACOG ALFA
     Indication: FACTOR IX DEFICIENCY
     Dosage: 7000 IU, EVERY 4 DAYS AND AS NEEDED
     Route: 042
     Dates: start: 202002
  2. ALPROLIX [Suspect]
     Active Substance: EFTRENONACOG ALFA
     Indication: FACTOR IX DEFICIENCY
     Dosage: 7000 IU, EVERY 4 DAYS AND AS NEEDED
     Route: 042
     Dates: start: 202002
  3. ALPROLIX [Suspect]
     Active Substance: EFTRENONACOG ALFA
     Dosage: 7000 IU, EVERY 4 DAYS AND AS NEEDED
     Route: 042
     Dates: start: 20210514
  4. ALPROLIX [Suspect]
     Active Substance: EFTRENONACOG ALFA
     Dosage: 7000 IU, EVERY 4 DAYS AND AS NEEDED
     Route: 042
     Dates: start: 20210514

REACTIONS (2)
  - Haemorrhage [Unknown]
  - Spinal cord haemorrhage [Recovering/Resolving]
